FAERS Safety Report 4305253-6 (Version None)
Quarter: 2004Q1

REPORT INFORMATION
  Report Type: 
  Country: None (occurrence: None)
  Receive Date: 20040226
  Receipt Date: 20031218
  Transmission Date: 20041129
  Serious: No
  Sender: FDA-Public Use
  Company Number: US-BRISTOL-MYERS SQUIBB COMPANY-12462016

PATIENT
  Age: 46 Year
  Sex: Male

DRUGS (1)
  1. DEFINITY [Suspect]
     Indication: SCAN WITH CONTRAST
     Dosage: DOSE: ^SMALL AMOUNT^ VIA CENTRAL LINE.
     Route: 042
     Dates: start: 20031204, end: 20031204

REACTIONS (1)
  - VOMITING [None]
